FAERS Safety Report 6304482-X (Version None)
Quarter: 2009Q3

REPORT INFORMATION
  Report Type: 
  Country: None (occurrence: None)
  Receive Date: 20090811
  Receipt Date: 20090729
  Transmission Date: 20100115
  Serious: Yes (Hospitalization, Other)
  Sender: FDA-Public Use
  Company Number: US-ROCHE-621410

PATIENT
  Sex: Female
  Weight: 40.8 kg

DRUGS (2)
  1. ACCUTANE [Suspect]
     Indication: ACNE
     Route: 048
     Dates: start: 19960628, end: 19961128
  2. ORTHO TRI-CYCLEN [Concomitant]

REACTIONS (11)
  - ACNE [None]
  - APHTHOUS STOMATITIS [None]
  - BRONCHITIS [None]
  - BULLOUS IMPETIGO [None]
  - COLITIS ULCERATIVE [None]
  - DEPRESSION [None]
  - DERMATITIS [None]
  - DERMATOSIS [None]
  - INFLAMMATORY BOWEL DISEASE [None]
  - OTITIS EXTERNA [None]
  - SMALL INTESTINAL OBSTRUCTION [None]
